FAERS Safety Report 21474228 (Version 1)
Quarter: 2022Q4

REPORT INFORMATION
  Report Type: Report from Study
  Country: US (occurrence: US)
  Receive Date: 20221018
  Receipt Date: 20221018
  Transmission Date: 20230113
  Serious: Yes (Hospitalization, Other)
  Sender: FDA-Public Use
  Company Number: US-BoehringerIngelheim-2022-BI-161075

PATIENT
  Age: 72 Year
  Sex: Female

DRUGS (2)
  1. OFEV [Suspect]
     Active Substance: NINTEDANIB
     Indication: Idiopathic pulmonary fibrosis
     Route: 048
     Dates: start: 20220303, end: 202205
  2. OFEV [Suspect]
     Active Substance: NINTEDANIB
     Dosage: WITH FOOD

REACTIONS (22)
  - Headache [Not Recovered/Not Resolved]
  - Abdominal discomfort [Unknown]
  - Nausea [Recovering/Resolving]
  - Nephrolithiasis [Recovered/Resolved]
  - COVID-19 [Recovered/Resolved]
  - Bradycardia [Unknown]
  - Nephrolithiasis [Unknown]
  - Myocardial injury [Unknown]
  - Diarrhoea [Recovering/Resolving]
  - COVID-19 [Not Recovered/Not Resolved]
  - Productive cough [Not Recovered/Not Resolved]
  - Wheezing [Not Recovered/Not Resolved]
  - Dyspnoea exertional [Not Recovered/Not Resolved]
  - Muscle spasms [Not Recovered/Not Resolved]
  - Upper respiratory tract infection [Unknown]
  - Vomiting [Unknown]
  - Fatigue [Not Recovered/Not Resolved]
  - Hypertension [Not Recovered/Not Resolved]
  - Oxygen saturation decreased [Not Recovered/Not Resolved]
  - Sputum discoloured [Unknown]
  - Traumatic lung injury [Unknown]
  - Illness [Unknown]

NARRATIVE: CASE EVENT DATE: 20220101
